FAERS Safety Report 16331186 (Version 5)
Quarter: 2021Q3

REPORT INFORMATION
  Report Type: Report from Study
  Country: US (occurrence: US)
  Receive Date: 20190520
  Receipt Date: 20210702
  Transmission Date: 20211014
  Serious: No
  Sender: FDA-Public Use
  Company Number: US-ACADIA PHARMACEUTICALS INC.-ACA-2019-012081

PATIENT
  Age: 85 Year
  Sex: Female

DRUGS (18)
  1. NUPLAZID [Suspect]
     Active Substance: PIMAVANSERIN TARTRATE
     Indication: PARKINSON^S DISEASE
     Dosage: 34 MILLIGRAM, QD
     Route: 048
     Dates: start: 20190212, end: 20201208
  2. NUPLAZID [Suspect]
     Active Substance: PIMAVANSERIN TARTRATE
     Dosage: 34 MILLIGRAM, QD
     Route: 048
     Dates: start: 20201210
  3. NUPLAZID [Suspect]
     Active Substance: PIMAVANSERIN TARTRATE
     Dosage: 20 MG, QD
     Route: 048
     Dates: start: 20190307
  4. OMEGA 3 6 9 COMPLEX [Concomitant]
     Route: 048
  5. FAMOTIDINE. [Concomitant]
     Active Substance: FAMOTIDINE
     Dosage: 40 MILLIGRAM, BID
  6. MUPIROCIN CALCIUM. [Concomitant]
     Active Substance: MUPIROCIN CALCIUM
     Dosage: 2% DAILY
     Route: 061
  7. VITAMIN E [Concomitant]
     Active Substance: .ALPHA.-TOCOPHEROL
     Dosage: 400 UNITS DAILY
     Route: 048
  8. VITAMINS NOS [Concomitant]
     Active Substance: VITAMINS
     Dosage: DAILY
     Route: 048
  9. STALEVO [Concomitant]
     Active Substance: CARBIDOPA\ENTACAPONE\LEVODOPA
     Dosage: 50?200?200MG
     Dates: start: 2019
  10. DULOXETINE. [Concomitant]
     Active Substance: DULOXETINE
     Dosage: 30 MILLIGRAM, QD
     Route: 048
  11. VOLTAREN [DICLOFENAC] [Concomitant]
     Active Substance: DICLOFENAC SODIUM
     Dosage: 1% GEL
     Route: 062
  12. NUPLAZID [Suspect]
     Active Substance: PIMAVANSERIN TARTRATE
     Dosage: 10 MG, QD
     Route: 048
  13. PAROXETINE. [Concomitant]
     Active Substance: PAROXETINE
     Dosage: 10 MILLIGRAM
  14. VITAMIN D3 [Concomitant]
     Active Substance: CHOLECALCIFEROL
     Dosage: 250 MICROGRAM (10000 UT)
     Route: 048
  15. CARBIDOPA/LEVODOPA [Concomitant]
     Active Substance: CARBIDOPA\LEVODOPA
     Dosage: UNK
     Dates: start: 2019
  16. LINZESS [Concomitant]
     Active Substance: LINACLOTIDE
     Dosage: 145 MICROGRAM
     Route: 048
  17. NUPLAZID [Suspect]
     Active Substance: PIMAVANSERIN TARTRATE
     Indication: PARKINSON^S DISEASE
     Dosage: UNK
     Route: 048
  18. PROLIA [Concomitant]
     Active Substance: DENOSUMAB
     Dosage: 60 MG/ML, EVERY 6 MONTHS

REACTIONS (16)
  - Thirst [Not Recovered/Not Resolved]
  - Decreased appetite [Unknown]
  - Dyspepsia [Unknown]
  - Fall [Unknown]
  - Hallucination [Not Recovered/Not Resolved]
  - Hallucination [Not Recovered/Not Resolved]
  - Fatigue [Unknown]
  - Nausea [Unknown]
  - Tooth fracture [Recovered/Resolved]
  - Urinary tract infection [Not Recovered/Not Resolved]
  - Delusion [Unknown]
  - Product dose omission issue [Unknown]
  - Confusional state [Not Recovered/Not Resolved]
  - Depression [Not Recovered/Not Resolved]
  - Dry throat [Not Recovered/Not Resolved]
  - Underdose [Unknown]

NARRATIVE: CASE EVENT DATE: 2019
